FAERS Safety Report 6815521-1 (Version None)
Quarter: 2010Q3

REPORT INFORMATION
  Report Type: 
  Country: None (occurrence: None)
  Receive Date: 20100702
  Receipt Date: 20100625
  Transmission Date: 20110219
  Serious: Yes (Hospitalization)
  Sender: FDA-Public Use
  Company Number: US-B.I. PHARMACEUTICALS,INC./RIDGEFIELD-2010-BP-07247BP

PATIENT
  Sex: Female
  Weight: 122.47 kg

DRUGS (7)
  1. SPIRIVA [Suspect]
     Indication: CHRONIC OBSTRUCTIVE PULMONARY DISEASE
     Dosage: 18 MCG
     Route: 055
     Dates: start: 20070101
  2. NOVOLOG [Concomitant]
     Indication: TYPE 2 DIABETES MELLITUS
     Route: 058
  3. LANTUS [Concomitant]
     Indication: TYPE 2 DIABETES MELLITUS
     Route: 058
  4. DIGOXIN [Concomitant]
     Indication: CARDIAC DISORDER
     Route: 048
  5. CARVEDILOL [Concomitant]
     Indication: CARDIAC DISORDER
     Route: 048
  6. PLAVIX [Concomitant]
     Indication: CARDIAC DISORDER
     Route: 048
  7. LISINOPRIL [Concomitant]
     Indication: CARDIAC DISORDER
     Route: 048

REACTIONS (5)
  - CORONARY ARTERY OCCLUSION [None]
  - DYSPNOEA [None]
  - PLEURITIC PAIN [None]
  - REOCCLUSION [None]
  - STERNAL INJURY [None]
